FAERS Safety Report 9713751 (Version 7)
Quarter: 2014Q1

REPORT INFORMATION
  Report Type: Report from Study
  Country: GB (occurrence: GB)
  Receive Date: 20131126
  Receipt Date: 20140218
  Transmission Date: 20141002
  Serious: Yes (Hospitalization)
  Sender: FDA-Public Use
  Company Number: GB-009507513-1306GBR000064

PATIENT
  Age: 15 Year
  Sex: Male
  Weight: 87.6 kg

DRUGS (6)
  1. BOCEPREVIR [Suspect]
     Indication: CHRONIC HEPATITIS C
     Dosage: 800MG, 1 DOSE ONLY
     Route: 048
     Dates: start: 20130319, end: 20130319
  2. MONTELUKAST SODIUM [Concomitant]
     Indication: ASTHMA
     Dosage: 4 MG, QD
     Route: 048
     Dates: start: 20070401
  3. SYMBICORT [Concomitant]
     Indication: ASTHMA
     Dosage: 1 PUFF, EVERY TWELVE HOURS-2X DAY
     Route: 055
     Dates: start: 20080401
  4. LORATADINE [Concomitant]
     Indication: ASTHMA
     Dosage: 10 MG, QD
     Route: 048
     Dates: start: 20100401
  5. ALBUTEROL [Concomitant]
     Indication: ASTHMA
     Dosage: 1 PUFFS, PRN
     Route: 055
     Dates: start: 20030401
  6. LACTULOSE [Concomitant]
     Indication: FAECES HARD

REACTIONS (2)
  - Alanine aminotransferase increased [Recovering/Resolving]
  - Alanine aminotransferase increased [Recovering/Resolving]
